FAERS Safety Report 24914084 (Version 1)
Quarter: 2025Q1

REPORT INFORMATION
  Report Type: Spontaneous
  Country: IT (occurrence: IT)
  Receive Date: 20250202
  Receipt Date: 20250202
  Transmission Date: 20250408
  Serious: Yes (Hospitalization)
  Sender: UCB
  Company Number: IT-UCBSA-2025005419

PATIENT
  Age: 55 Year
  Sex: Female
  Weight: 68 kg

DRUGS (1)
  1. BIMZELX [Suspect]
     Active Substance: BIMEKIZUMAB-BKZX
     Indication: Psoriasis
     Route: 058
     Dates: start: 20240215, end: 20241214

REACTIONS (1)
  - Lemierre syndrome [Recovering/Resolving]

NARRATIVE: CASE EVENT DATE: 20241214
